FAERS Safety Report 7669472-3 (Version None)
Quarter: 2011Q3

REPORT INFORMATION
  Report Type: 
  Country: None (occurrence: None)
  Receive Date: 20110808
  Receipt Date: 20110803
  Transmission Date: 20111222
  Serious: Yes (Other)
  Sender: FDA-Public Use
  Company Number: FR-PFIZER INC-2011177175

PATIENT
  Age: 58 Year
  Sex: Female

DRUGS (21)
  1. ALDOMET [Suspect]
     Dosage: 250 MG, 2X/DAY
     Route: 048
     Dates: start: 19771013, end: 19930101
  2. PROPRANOLOL [Suspect]
     Indication: HYPERTENSION
     Dosage: UNK
     Route: 048
     Dates: start: 19930101
  3. FLECAINIDE ACETATE [Suspect]
     Dosage: 1 DF, 2X/DAY
     Route: 048
     Dates: start: 19940101, end: 20030411
  4. LERCANIDIPINE [Suspect]
     Dosage: 10 MG, 1X/DAY
     Route: 048
     Dates: start: 20010316
  5. MEDIATOR [Suspect]
     Dosage: 150 MG, 2X/DAY
     Route: 048
     Dates: start: 19780930, end: 19790519
  6. DIAMICRON [Suspect]
     Indication: TYPE 2 DIABETES MELLITUS
     Dosage: 0.5 DF, 1X/DAY
     Route: 048
     Dates: start: 19780101, end: 20060101
  7. PREVISCAN [Suspect]
     Dosage: UNK
     Dates: start: 19940101
  8. DIGOXIN [Suspect]
     Dosage: UNK
     Route: 048
     Dates: start: 20030411
  9. CORDARONE [Suspect]
     Dosage: 200 MG, UNK
     Route: 048
     Dates: start: 19980101, end: 20030411
  10. AMLODIPINE BESYLATE [Suspect]
     Dosage: 5 MG
     Route: 048
     Dates: start: 19940101
  11. MEDIATOR [Suspect]
     Indication: TYPE 2 DIABETES MELLITUS
     Dosage: 150 MG, 3X/DAY
     Route: 048
     Dates: start: 19771013, end: 19780930
  12. MEDIATOR [Suspect]
     Dosage: 150 MG, 1X/DAY
     Route: 048
     Dates: start: 19790519, end: 20040219
  13. TANAKAN [Suspect]
     Dosage: 50 GTT, 3X/DAY
     Route: 048
     Dates: start: 19940101
  14. ISOPTIN [Suspect]
     Dosage: 120 MG, 3X/DAY
     Route: 048
     Dates: start: 19980304, end: 20010316
  15. COZAAR [Suspect]
     Dosage: 50 MG, 1X/DAY
     Route: 048
     Dates: start: 19980101
  16. RIBATRAN [Suspect]
     Dosage: 1 DF, 2X/DAY
     Route: 048
  17. NEURONTIN [Suspect]
     Indication: TREMOR
     Dosage: 300 MG, 3X/DAY
     Route: 048
     Dates: start: 20030301
  18. SINTROM [Suspect]
     Dosage: UNK
     Route: 048
     Dates: start: 19830611
  19. IKOREL [Suspect]
     Dosage: 10 MG, 2X/DAY
     Route: 048
     Dates: start: 20020315
  20. CYCLO 3 [Suspect]
     Dosage: 1 DF, 2X/DAY
     Route: 048
     Dates: start: 19940101
  21. ADANCOR [Suspect]
     Dosage: 10 MG, UNK
     Route: 048
     Dates: end: 19980304

REACTIONS (4)
  - MITRAL VALVE DISEASE [None]
  - PULMONARY HYPERTENSION [None]
  - AORTIC VALVE DISEASE [None]
  - TRICUSPID VALVE DISEASE [None]
